FAERS Safety Report 9095354 (Version 1)
Quarter: 2013Q1

REPORT INFORMATION
  Report Type: Spontaneous
  Country: None (occurrence: None)
  Receive Date: 20130123
  Receipt Date: 20130123
  Transmission Date: 20140127
  Serious: Yes (Hospitalization, Other)
  Sender: FDA-Public Use
  Company Number: 2013P1000030

PATIENT
  Age: 20 Month
  Sex: 0
  Weight: 11.79 kg

DRUGS (2)
  1. MIDAZOLAM HCL INJECTION USP 2 MG/2 ML VIAL [Suspect]
     Indication: SEDATION
     Route: 042
     Dates: start: 20130101, end: 20130101
  2. PRELONE [Concomitant]

REACTIONS (3)
  - Respiratory distress [None]
  - Croup infectious [None]
  - Drug ineffective [None]
